FAERS Safety Report 4673212-X (Version None)
Quarter: 2005Q2

REPORT INFORMATION
  Report Type: 
  Country: None (occurrence: None)
  Receive Date: 20050523
  Receipt Date: 20050523
  Transmission Date: 20051028
  Serious: Yes (Other)
  Sender: FDA-Public Use
  Company Number: None

PATIENT
  Age: 60 Year
  Sex: Male
  Weight: 96.8 kg

DRUGS (12)
  1. ATORVASTATIN [Suspect]
  2. LISINOPRIL [Concomitant]
  3. ALBUTEROL SULFATE AND IPRATROPIUM BROMIDE [Concomitant]
  4. POTASSIUM CHLORIDE [Concomitant]
  5. SIMVASTATIN [Concomitant]
  6. FUROSEMIDE [Concomitant]
  7. OMEPRAZOLE [Concomitant]
  8. FORMOTEROL FUMARATE [Concomitant]
  9. ATORVASTATIN CALCIUM [Concomitant]
  10. HYDROCODONE 5/ACETAMINOPHEN [Concomitant]
  11. NITROGLYCERIN [Concomitant]
  12. CYCLOBENZAPRINE HCL [Concomitant]

REACTIONS (1)
  - MYALGIA [None]
